FAERS Safety Report 14868430 (Version 1)
Quarter: 2018Q2

REPORT INFORMATION
  Report Type: Spontaneous
  Country: FR (occurrence: FR)
  Receive Date: 20180509
  Receipt Date: 20180509
  Transmission Date: 20180711
  Serious: Yes (Life-Threatening, Hospitalization)
  Sender: FDA-Public Use
  Company Number: FR-ADIENNEP-2018AD000214

PATIENT
  Age: 12 Year
  Sex: Male
  Weight: 32 kg

DRUGS (6)
  1. MINIRINMELT [Concomitant]
     Active Substance: DESMOPRESSIN ACETATE
     Indication: DIABETES INSIPIDUS
     Dosage: 60 UG DAILY
     Route: 047
     Dates: start: 20180302
  2. THIOTEPA. [Suspect]
     Active Substance: THIOTEPA
     Indication: STEM CELL TRANSPLANT
     Dosage: 300 MG/M2
     Route: 042
     Dates: start: 20180302, end: 20180304
  3. ETOPOSIDE. [Suspect]
     Active Substance: ETOPOSIDE
     Indication: STEM CELL TRANSPLANT
     Dosage: 500 MG/M2 DAILY
     Route: 042
     Dates: start: 20180302, end: 20180304
  4. ONDANSETRON [Concomitant]
     Active Substance: ONDANSETRON
     Indication: NAUSEA
     Dosage: 12 MG DAILY
     Route: 042
     Dates: start: 20180305
  5. URSOLVAN 200 [Concomitant]
     Active Substance: URSODIOL
     Indication: CHOLELITHIASIS
     Dosage: 400 MG DAILY
     Dates: start: 20180302
  6. HYDROXYZINE (CHLORHYDRATE D^) [Concomitant]
     Active Substance: HYDROXYZINE HYDROCHLORIDE
     Indication: ANAESTHESIA
     Dosage: 1 MG/KG DAILY
     Route: 042
     Dates: start: 20180305

REACTIONS (1)
  - Toxic skin eruption [Recovering/Resolving]

NARRATIVE: CASE EVENT DATE: 20180308
